FAERS Safety Report 6160994-3 (Version None)
Quarter: 2009Q2

REPORT INFORMATION
  Report Type: 
  Country: None (occurrence: None)
  Receive Date: 20090420
  Receipt Date: 20090408
  Transmission Date: 20091009
  Serious: Yes (Death, Hospitalization)
  Sender: FDA-Public Use
  Company Number: BE-PFIZER INC-2007107622

PATIENT

DRUGS (21)
  1. MARAVIROC [Suspect]
  2. RITONAVIR [Concomitant]
     Route: 048
     Dates: start: 20071112
  3. COMBIVIR [Concomitant]
     Route: 048
     Dates: start: 20071112
  4. TIPRANAVIR [Concomitant]
     Route: 048
     Dates: start: 20071112
  5. BACTRIM [Concomitant]
     Route: 048
     Dates: start: 20030718
  6. TRAMADOL HCL [Concomitant]
     Route: 048
     Dates: start: 20010105
  7. FUROSEMIDE [Concomitant]
     Route: 048
     Dates: start: 20070330
  8. SPIRONOLACTONE [Concomitant]
     Route: 048
     Dates: start: 20070330
  9. METHADONE HCL [Concomitant]
     Route: 048
     Dates: start: 20010605
  10. ALL OTHER THERAPEUTIC PRODUCTS [Concomitant]
  11. RANITIDINE [Concomitant]
  12. FLUCONAZOLE [Concomitant]
  13. AZITHROMYCIN [Concomitant]
  14. LACTULOSE [Concomitant]
  15. TRAVOCORT [Concomitant]
  16. DERMALEX [Concomitant]
  17. POTASSIUM PERMANGANATE [Concomitant]
  18. DICLOFENAC SODIUM [Concomitant]
  19. DAKTARIN [Concomitant]
  20. ALL OTHER THERAPEUTIC PRODUCTS [Concomitant]
  21. MORPHINE [Concomitant]

REACTIONS (3)
  - LYMPHOMA [None]
  - PSORIASIS [None]
  - SEPTIC SHOCK [None]
